FAERS Safety Report 8772019 (Version 2)
Quarter: 2012Q4

REPORT INFORMATION
  Report Type: 
  Country: JP (occurrence: JP)
  Receive Date: 20120905
  Receipt Date: 20120905
  Transmission Date: 20130627
  Serious: Yes (Other)
  Sender: FDA-Public Use
  Company Number: PHHY2012JP063051

PATIENT
  Age: 82 Year
  Sex: Female

DRUGS (4)
  1. NEORAL [Suspect]
     Indication: INTERSTITIAL LUNG DISEASE
     Dosage: 100 mg, QD
     Route: 048
     Dates: start: 20120322
  2. NEORAL [Suspect]
     Dosage: 50 mg, QD
     Route: 048
  3. NEORAL [Suspect]
     Dosage: 100 mg, QD
     Route: 048
  4. PREDONINE [Concomitant]
     Dosage: 25 mg, UNK
     Route: 048

REACTIONS (2)
  - Blood cortisol decreased [Not Recovered/Not Resolved]
  - Blood sodium decreased [Not Recovered/Not Resolved]
